FAERS Safety Report 13688100 (Version 1)
Quarter: 2017Q2

REPORT INFORMATION
  Report Type: Spontaneous
  Country: US (occurrence: US)
  Receive Date: 20170626
  Receipt Date: 20170626
  Transmission Date: 20170830
  Serious: Yes (Other)
  Sender: FDA-Public Use
  Company Number: US-PFIZER INC-2017273176

PATIENT
  Age: 60 Year
  Sex: Male
  Weight: 124 kg

DRUGS (8)
  1. VENLAFAXINE HCL [Suspect]
     Active Substance: VENLAFAXINE HYDROCHLORIDE
     Dosage: 150 MG, 1X/DAY
  2. VENLAFAXINE HCL [Suspect]
     Active Substance: VENLAFAXINE HYDROCHLORIDE
     Indication: DEPRESSION
     Dosage: 75 MG, 2X/DAY
     Route: 048
     Dates: start: 20170216, end: 201704
  3. D-AMPHETAMINE [Concomitant]
     Active Substance: DEXTROAMPHETAMINE
     Indication: NARCOLEPSY
     Dosage: 15 MG, 2X/DAY
  4. DEXTROAMPHETAMINE /00016601/ [Concomitant]
     Active Substance: DEXTROAMPHETAMINE
     Indication: NARCOLEPSY
     Dosage: 10 MG, 2X/DAY
  5. ATORVASTATIN [Concomitant]
     Active Substance: ATORVASTATIN
     Indication: BLOOD CHOLESTEROL INCREASED
     Dosage: 20 MG, 1X/DAY
  6. METFORMIN [Concomitant]
     Active Substance: METFORMIN HYDROCHLORIDE
     Indication: DIABETES MELLITUS
     Dosage: 500 MG, 2X/DAY
  7. LISINOPRIL. [Concomitant]
     Active Substance: LISINOPRIL
     Indication: HYPERTENSION
     Dosage: 6.25 MG, 1X/DAY (12.5MG, HALF TABLET ONCE A DAY)
  8. METFORMIN [Concomitant]
     Active Substance: METFORMIN HYDROCHLORIDE
     Dosage: 500 MG, 1X/DAY

REACTIONS (4)
  - Dizziness [Unknown]
  - Headache [Unknown]
  - Blood pressure increased [Unknown]
  - Anger [Recovered/Resolved]
